FAERS Safety Report 17595091 (Version 1)
Quarter: 2020Q1

REPORT INFORMATION
  Report Type: Spontaneous
  Country: CA (occurrence: CA)
  Receive Date: 20200328
  Receipt Date: 20200328
  Transmission Date: 20200409
  Serious: Yes (Hospitalization)
  Sender: FDA-Public Use
  Company Number: NVSC2020CA086426

PATIENT
  Age: 36 Year
  Sex: Female

DRUGS (2)
  1. SANDOZ ONDANSETRON ODT [Suspect]
     Active Substance: ONDANSETRON
     Indication: CYCLIC VOMITING SYNDROME
  2. SANDOZ ONDANSETRON ODT [Suspect]
     Active Substance: ONDANSETRON
     Indication: GASTROINTESTINAL HYPOMOTILITY
     Dosage: 4 MG, PRN
     Route: 065

REACTIONS (3)
  - Product solubility abnormal [Recovered/Resolved]
  - Drug ineffective [Recovered/Resolved]
  - Vomiting [Recovered/Resolved]
